FAERS Safety Report 24041453 (Version 1)
Quarter: 2024Q3

REPORT INFORMATION
  Report Type: Spontaneous
  Country: US (occurrence: US)
  Receive Date: 20240702
  Receipt Date: 20240702
  Transmission Date: 20241017
  Serious: No
  Sender: PFIZER
  Company Number: US-PFIZER INC-202400201795

PATIENT
  Age: 77 Year
  Sex: Male
  Weight: 87.982 kg

DRUGS (3)
  1. VYNDAMAX [Suspect]
     Active Substance: TAFAMIDIS
     Indication: Acquired ATTR amyloidosis
     Dosage: 61 MG, 1X/DAY
     Route: 048
  2. VYNDAMAX [Suspect]
     Active Substance: TAFAMIDIS
     Indication: Cardiac amyloidosis
  3. ALDACTONE [Concomitant]
     Active Substance: SPIRONOLACTONE
     Dosage: TAKE 1 TABLET (25 MG) BY MOUTH IN THE MORNING
     Route: 048

REACTIONS (1)
  - Weight decreased [Unknown]
